FAERS Safety Report 22368083 (Version 2)
Quarter: 2023Q2

REPORT INFORMATION
  Report Type: Report from Study
  Country: TR (occurrence: TR)
  Receive Date: 20230525
  Receipt Date: 20230529
  Transmission Date: 20230722
  Serious: Yes (Hospitalization)
  Sender: FDA-Public Use
  Company Number: TR-ASTELLAS-2023EU001411

PATIENT
  Sex: Female
  Weight: 1.75 kg

DRUGS (1)
  1. TACROLIMUS [Suspect]
     Active Substance: TACROLIMUS
     Indication: Liver transplant
     Dosage: UNK UNK, UNKNOWN FREQ.
     Route: 064

REACTIONS (3)
  - Low birth weight baby [Unknown]
  - Foetal exposure during pregnancy [Unknown]
  - Premature baby [Unknown]
